FAERS Safety Report 15802600 (Version 2)
Quarter: 2019Q1

REPORT INFORMATION
  Report Type: Spontaneous
  Country: US (occurrence: US)
  Receive Date: 20190109
  Receipt Date: 20190206
  Transmission Date: 20190417
  Serious: Yes (Hospitalization, Disabling, Other)
  Sender: FDA-Public Use
  Company Number: PHEH2019US000701

PATIENT
  Age: 6 Year
  Sex: Male

DRUGS (1)
  1. METHOTREXATE SODIUM. [Suspect]
     Active Substance: METHOTREXATE SODIUM
     Indication: LYMPHOCYTIC LEUKAEMIA
     Dosage: UNK, ONCE/SINGLE
     Route: 037
     Dates: start: 20180529, end: 20180529

REACTIONS (6)
  - Device related thrombosis [Unknown]
  - Fine motor skill dysfunction [Unknown]
  - Toxicity to various agents [Unknown]
  - Leukoencephalopathy [Recovered/Resolved with Sequelae]
  - Aphasia [Unknown]
  - Staphylococcal bacteraemia [Unknown]

NARRATIVE: CASE EVENT DATE: 20180602
